FAERS Safety Report 7883496-2 (Version None)
Quarter: 2011Q4

REPORT INFORMATION
  Report Type: 
  Country: None (occurrence: None)
  Receive Date: 20111102
  Receipt Date: 20110415
  Transmission Date: 20120403
  Serious: No
  Sender: FDA-Public Use
  Company Number: US-GLAXOSMITHKLINE-A0923184A

PATIENT
  Sex: Male

DRUGS (2)
  1. RYTHMOL SR [Suspect]
     Indication: ARRHYTHMIA
     Dosage: 325MG TWICE PER DAY
     Route: 048
     Dates: start: 20110407
  2. MULTAQ [Suspect]
     Indication: PRODUCT USED FOR UNKNOWN INDICATION
     Route: 065

REACTIONS (2)
  - DYSPNOEA [None]
  - ANXIETY [None]
